FAERS Safety Report 19625160 (Version 3)
Quarter: 2021Q3

REPORT INFORMATION
  Report Type: Spontaneous
  Country: US (occurrence: US)
  Receive Date: 20210729
  Receipt Date: 20210903
  Transmission Date: 20211014
  Serious: Yes (Hospitalization)
  Sender: FDA-Public Use
  Company Number: US-NOVOPROD-832453

PATIENT
  Age: 72 Year
  Sex: Female

DRUGS (2)
  1. NOVOFINE PLUS (32G) [Concomitant]
     Indication: DEVICE THERAPY
     Dosage: UNK
  2. OZEMPIC [Suspect]
     Active Substance: SEMAGLUTIDE
     Indication: PRODUCT USED FOR UNKNOWN INDICATION
     Dosage: 0.5 MG
     Route: 058
     Dates: start: 20210703, end: 20210711

REACTIONS (3)
  - Nausea [Recovered/Resolved]
  - Blood potassium decreased [Recovering/Resolving]
  - Hypersensitivity [Recovering/Resolving]

NARRATIVE: CASE EVENT DATE: 20210704
